FAERS Safety Report 16463610 (Version 1)
Quarter: 2019Q3

REPORT INFORMATION
  Report Type: Spontaneous
  Country: US (occurrence: US)
  Receive Date: 20190620
  Receipt Date: 20190620
  Transmission Date: 20191004
  Serious: Yes (Hospitalization)
  Sender: FDA-Public Use
  Company Number: None

PATIENT
  Sex: Female

DRUGS (8)
  1. TEMOZOLOMIDE. [Suspect]
     Active Substance: TEMOZOLOMIDE
     Indication: BRAIN NEOPLASM MALIGNANT
     Route: 048
     Dates: start: 20190522
  2. OXYCODONE 5MG TABLETS [Concomitant]
     Dates: start: 20190521
  3. ATENOLOL 25MG TABLETS [Concomitant]
     Dates: start: 20190521
  4. POTASSIUM TABLET 20 MEQ [Concomitant]
     Dates: start: 20190619
  5. LEVETIRACETARAM 1000MG TABLETS [Concomitant]
     Dates: start: 20190521
  6. FIORCET CAPSULE [Concomitant]
     Dates: start: 20190521
  7. NAPROXEN 500MG TABLETS [Concomitant]
     Dates: start: 20190521
  8. OMEPRAZOLE 20MG CAPSULES [Concomitant]
     Dates: start: 20190521

REACTIONS (1)
  - Therapy cessation [None]
